FAERS Safety Report 16517392 (Version 2)
Quarter: 2019Q3

REPORT INFORMATION
  Report Type: Spontaneous
  Country: JP (occurrence: JP)
  Receive Date: 20190702
  Receipt Date: 20190709
  Transmission Date: 20191004
  Serious: Yes (Other)
  Sender: FDA-Public Use
  Company Number: JP-PFIZER INC-2019273094

PATIENT
  Age: 51 Year
  Sex: Male

DRUGS (1)
  1. CELECOXIB. [Suspect]
     Active Substance: CELECOXIB
     Indication: GOUT
     Dosage: 200 MG, 1X/DAY
     Route: 048

REACTIONS (3)
  - Acute oesophageal mucosal lesion [Recovered/Resolved]
  - Off label use [Unknown]
  - Oesophagitis chemical [Recovered/Resolved]
